FAERS Safety Report 10018967 (Version 1)
Quarter: 2014Q1

REPORT INFORMATION
  Report Type: Spontaneous
  Country: BR (occurrence: BR)
  Receive Date: 20140318
  Receipt Date: 20140318
  Transmission Date: 20141002
  Serious: Yes (Other)
  Sender: FDA-Public Use
  Company Number: BR-GLAXOSMITHKLINE-A1065462A

PATIENT
  Age: 62 Year
  Sex: Female

DRUGS (8)
  1. SERETIDE [Suspect]
     Indication: PRODUCT USED FOR UNKNOWN INDICATION
     Route: 065
     Dates: start: 201006
  2. ALENDRONATE [Concomitant]
  3. SODIUM CARBONATE [Concomitant]
  4. VITAMIN D [Concomitant]
  5. LOSARTAN POTASSIUM [Concomitant]
  6. HYDROCHLOROTHIAZIDE [Concomitant]
  7. OMEPRAZOLE [Concomitant]
  8. CITALOPRAM [Concomitant]

REACTIONS (1)
  - Breast cancer [Recovered/Resolved]
